FAERS Safety Report 16239061 (Version 1)
Quarter: 2019Q2

REPORT INFORMATION
  Report Type: Spontaneous
  Country: US (occurrence: US)
  Receive Date: 20190425
  Receipt Date: 20190425
  Transmission Date: 20190711
  Serious: No
  Sender: FDA-Public Use
  Company Number: US-SA-2019SA112377

PATIENT
  Age: 22 Year
  Sex: Male

DRUGS (4)
  1. VANICREAM [Concomitant]
     Active Substance: TITANIUM DIOXIDE\ZINC OXIDE
  2. EUCRISA [Concomitant]
     Active Substance: CRISABOROLE
  3. DUPIXENT [Suspect]
     Active Substance: DUPILUMAB
     Indication: DERMATITIS ATOPIC
     Dosage: 300 MG, QOW
     Route: 058
     Dates: start: 20181010
  4. TRIAMCINOLON [TRIAMCINOLONE] [Concomitant]

REACTIONS (3)
  - Sleep disorder [Unknown]
  - Dermatitis [Unknown]
  - Anxiety [Unknown]

NARRATIVE: CASE EVENT DATE: 20181231
